FAERS Safety Report 13069648 (Version 14)
Quarter: 2019Q1

REPORT INFORMATION
  Report Type: Report from Study
  Country: CA (occurrence: CA)
  Receive Date: 20161228
  Receipt Date: 20190322
  Transmission Date: 20190417
  Serious: Yes (Hospitalization, Other)
  Sender: FDA-Public Use
  Company Number: CA-TAKEDA-2016TUS022956

PATIENT
  Age: 42 Year
  Sex: Female

DRUGS (13)
  1. VEDOLIZUMAB [Suspect]
     Active Substance: VEDOLIZUMAB
     Indication: CROHN^S DISEASE
     Dosage: 300 MG, UNK
     Route: 042
     Dates: start: 20161203
  2. CITALOPRAM [Concomitant]
     Active Substance: CITALOPRAM HYDROBROMIDE
     Dosage: 30 MG, QD
  3. EPREX [Concomitant]
     Active Substance: ERYTHROPOIETIN
     Dosage: 10000 IU, 3/WEEK
  4. CELLCEPT [Concomitant]
     Active Substance: MYCOPHENOLATE MOFETIL\MYCOPHENOLATE MOFETIL HYDROCHLORIDE
     Dosage: 500 MG, BID
  5. HYDROMORPHONE [Concomitant]
     Active Substance: HYDROMORPHONE
     Dosage: 3 MG, QD
  6. VEDOLIZUMAB [Suspect]
     Active Substance: VEDOLIZUMAB
     Dosage: 300 MILLIGRAM
     Route: 042
  7. VEDOLIZUMAB [Suspect]
     Active Substance: VEDOLIZUMAB
     Dosage: 300 MILLIGRAM UNK
     Route: 042
  8. VEDOLIZUMAB [Suspect]
     Active Substance: VEDOLIZUMAB
     Dosage: 300 MILLIGRAM
     Route: 042
  9. INFLIXIMAB [Concomitant]
     Active Substance: INFLIXIMAB
     Indication: ANTICOAGULANT THERAPY
     Dosage: 0.5 MG, UNK
     Route: 050
  10. CIPRO [Concomitant]
     Active Substance: CIPROFLOXACIN HYDROCHLORIDE
     Dosage: 500 MG, QD
     Dates: start: 20161107
  11. VEDOLIZUMAB [Suspect]
     Active Substance: VEDOLIZUMAB
     Dosage: 300 MG, UNK
     Route: 042
     Dates: start: 20170830
  12. TACROLIMUS. [Concomitant]
     Active Substance: TACROLIMUS
     Dosage: 3 MG, BID
  13. EPOETIN ALFA [Concomitant]
     Active Substance: ERYTHROPOIETIN
     Dosage: 1 MG, 3/WEEK

REACTIONS (13)
  - Renal transplant [Unknown]
  - Pain [Unknown]
  - Stent placement [Not Recovered/Not Resolved]
  - Thrombosis [Unknown]
  - Escherichia urinary tract infection [Unknown]
  - Kidney infection [Unknown]
  - Urinary tract infection [Recovered/Resolved]
  - Arthritis enteropathic [Unknown]
  - Therapeutic reaction time decreased [Unknown]
  - Large intestinal obstruction [Unknown]
  - Arteriovenous fistula operation [Unknown]
  - Blood pressure decreased [Unknown]
  - Herpes zoster [Recovered/Resolved with Sequelae]

NARRATIVE: CASE EVENT DATE: 201612
